FAERS Safety Report 24272966 (Version 1)
Quarter: 2024Q3

REPORT INFORMATION
  Report Type: Spontaneous
  Country: JP (occurrence: JP)
  Receive Date: 20240902
  Receipt Date: 20240902
  Transmission Date: 20241017
  Serious: Yes (Other)
  Sender: BIOLOGICAL E.
  Company Number: JP-BELUSA-2024BELLIT0098

PATIENT

DRUGS (1)
  1. HEPARIN SODIUM [Suspect]
     Active Substance: HEPARIN SODIUM
     Indication: Deep vein thrombosis
     Dosage: LOW DOSE OF HEPARIN (6,000 TO 10,000UNITS/DAY)
     Route: 065

REACTIONS (1)
  - Drug ineffective [Unknown]
